FAERS Safety Report 11791247 (Version 3)
Quarter: 2016Q1

REPORT INFORMATION
  Report Type: Spontaneous
  Country: US (occurrence: US)
  Receive Date: 20151201
  Receipt Date: 20160225
  Transmission Date: 20160525
  Serious: Yes (Hospitalization, Other)
  Sender: FDA-Public Use
  Company Number: US-PFIZER INC-2015407065

PATIENT
  Age: 78 Year
  Sex: Female
  Weight: 51.71 kg

DRUGS (26)
  1. FERROUS SULFATE [Concomitant]
     Active Substance: FERROUS SULFATE\FERROUS SULFATE, DRIED
     Indication: VITAMIN B12 DEFICIENCY
     Dosage: 325 MG, 2X/DAY (325 MG (65 MG IRON))
     Route: 048
     Dates: start: 20151109
  2. PULMICORT TURBUHALER [Concomitant]
     Active Substance: BUDESONIDE
     Indication: CHRONIC OBSTRUCTIVE PULMONARY DISEASE
     Dosage: 1 DF, 2X/DAY (0.5 MG/2 ML)
     Route: 045
     Dates: start: 20160115
  3. REVATIO [Suspect]
     Active Substance: SILDENAFIL CITRATE
     Indication: PULMONARY HYPERTENSION
     Dosage: 20 MG, 3X/DAY
     Route: 048
  4. GUAIFENESIN. [Concomitant]
     Active Substance: GUAIFENESIN
     Indication: CHRONIC OBSTRUCTIVE PULMONARY DISEASE
     Dosage: 600 MG, 2X/DAY
     Route: 048
     Dates: start: 20151109
  5. IMURAN [Concomitant]
     Active Substance: AZATHIOPRINE
     Indication: CARDIAC FAILURE CONGESTIVE
     Dosage: 50 MG, 1X/DAY
     Route: 048
     Dates: start: 20151109
  6. MIRALAX [Concomitant]
     Active Substance: POLYETHYLENE GLYCOL 3350
     Indication: CONSTIPATION
     Dosage: 17 G, 1X/DAY IN THE MORNING
     Route: 048
     Dates: start: 20160108
  7. ACETAMINOPHEN AND CODEINE [Concomitant]
     Active Substance: ACETAMINOPHEN\CODEINE PHOSPHATE
     Indication: PAIN
     Dosage: 1 DF, AS NEEDED (ACETAMINOPHEN 300MG-CODEINE 30MG) (EVERY 6 HOURS)
     Route: 048
     Dates: start: 20151124
  8. PROAIR HFA [Concomitant]
     Active Substance: ALBUTEROL SULFATE
     Indication: CHRONIC OBSTRUCTIVE PULMONARY DISEASE
  9. VOLTAREN [Concomitant]
     Active Substance: DICLOFENAC SODIUM
     Indication: OSTEOARTHRITIS
     Dosage: UNK, AS NEEDED
     Route: 061
  10. FERROUS SULFATE [Concomitant]
     Active Substance: FERROUS SULFATE\FERROUS SULFATE, DRIED
     Indication: ANAEMIA
  11. LACTOBACILLUS ACIDOPHILUS\LACTOBACILLUS BULGARICUS [Concomitant]
     Active Substance: LACTOBACILLUS ACIDOPHILUS\LACTOBACILLUS DELBRUECKII SUBSP. BULGARICUS
     Indication: DIARRHOEA
     Dosage: 1 DF, 2X/DAY(1 MILLION CELL)
     Route: 048
     Dates: start: 20151109
  12. CARAFATE [Concomitant]
     Active Substance: SUCRALFATE
     Dosage: 10 ML, 1X/DAY (100 MG/ML)
     Route: 048
     Dates: start: 20160204
  13. TRAMADOL. [Concomitant]
     Active Substance: TRAMADOL
     Indication: PAIN
  14. PROAIR HFA [Concomitant]
     Active Substance: ALBUTEROL SULFATE
     Indication: DYSPNOEA
     Dosage: 2 DF, AS NEEDED (90 MCG/ACTUATION) (Q4H)
     Route: 045
     Dates: start: 20151109
  15. REVATIO [Suspect]
     Active Substance: SILDENAFIL CITRATE
     Indication: CHRONIC OBSTRUCTIVE PULMONARY DISEASE
  16. FUROSEMIDE. [Concomitant]
     Active Substance: FUROSEMIDE
     Indication: CARDIAC FAILURE CONGESTIVE
     Dosage: 20 MG, 1X/DAY
     Route: 048
     Dates: start: 20151109
  17. OMEPRAZOLE. [Concomitant]
     Active Substance: OMEPRAZOLE
     Indication: GASTROOESOPHAGEAL REFLUX DISEASE
     Dosage: 20 MG, 1X/DAY IN THE MORNING
     Route: 048
     Dates: start: 20151109
  18. GERI-LANTA [Concomitant]
     Indication: GASTROOESOPHAGEAL REFLUX DISEASE
     Dosage: 30 ML, AS NEEDED (200-200-20 MG/5 ML) (Q6H PRN)
     Route: 048
     Dates: start: 20151109
  19. GERI-LANTA [Concomitant]
     Indication: DYSPEPSIA
  20. TRAMADOL. [Concomitant]
     Active Substance: TRAMADOL
     Indication: PAIN
     Dosage: 50 MG, AS NEEDED (Q6H)
     Route: 048
     Dates: start: 20151109
  21. SPIRIVA WITH HANDIHALER [Concomitant]
     Indication: CHRONIC OBSTRUCTIVE PULMONARY DISEASE
     Dosage: 18 UG, 1X/DAY (CAPSULE, W/INHALATION DEVICE)
     Route: 045
     Dates: start: 20151109
  22. XOPENEX [Concomitant]
     Active Substance: LEVALBUTEROL HYDROCHLORIDE
     Indication: CHRONIC OBSTRUCTIVE PULMONARY DISEASE
     Dosage: 3 ML, 4X/DAY (0.63 MG/3 ML)
     Route: 045
     Dates: start: 20151109
  23. DIPHENOXYLATE HYDROCHLORIDE AND ATROPINE SULFATE [Concomitant]
     Active Substance: ATROPINE SULFATE\DIPHENOXYLATE HYDROCHLORIDE
     Indication: DIARRHOEA
     Dosage: 1 DF, AS NEEDED (DIPHENOXYLATE 2.5MG-ATROPINE 0.25MG) (Q6H PRN)
     Route: 048
     Dates: start: 20151109
  24. REVATIO [Suspect]
     Active Substance: SILDENAFIL CITRATE
     Indication: PULMONARY CONGESTION
  25. DILTIAZEM HYDROCHLORIDE. [Concomitant]
     Active Substance: DILTIAZEM HYDROCHLORIDE
     Indication: HYPERTENSION
     Dosage: 240 MG, 1X/DAY
     Route: 048
     Dates: start: 20151109
  26. FAMOTIDINE. [Concomitant]
     Active Substance: FAMOTIDINE
     Indication: GASTROOESOPHAGEAL REFLUX DISEASE
     Dosage: 20 MG, 1X/DAY
     Route: 048
     Dates: start: 20151109

REACTIONS (10)
  - Wound [Unknown]
  - Nasal congestion [Unknown]
  - Skin infection [Unknown]
  - Nausea [Unknown]
  - Dyspepsia [Unknown]
  - Upper respiratory tract infection [Unknown]
  - Pneumonia [Recovered/Resolved]
  - Decubitus ulcer [Unknown]
  - Cardiac failure congestive [Recovered/Resolved]
  - Vomiting [Unknown]

NARRATIVE: CASE EVENT DATE: 201505
